FAERS Safety Report 21079173 (Version 2)
Quarter: 2022Q3

REPORT INFORMATION
  Report Type: Spontaneous
  Country: JP (occurrence: JP)
  Receive Date: 20220714
  Receipt Date: 20220726
  Transmission Date: 20221026
  Serious: Yes (Hospitalization)
  Sender: FDA-Public Use
  Company Number: JP-BAYER-2022A094726

PATIENT
  Age: 58 Year
  Sex: Male

DRUGS (6)
  1. XARELTO [Suspect]
     Active Substance: RIVAROXABAN
     Indication: Atrial fibrillation
     Dosage: 15MG DAILY
     Route: 048
  2. DIGOXIN [Concomitant]
     Active Substance: DIGOXIN
  3. BISOPROLOL [Concomitant]
     Active Substance: BISOPROLOL
  4. DIGOXIN [Concomitant]
     Active Substance: DIGOXIN
  5. AZOSEMIDE [Concomitant]
     Active Substance: AZOSEMIDE
  6. EPLERENONE [Concomitant]
     Active Substance: EPLERENONE

REACTIONS (2)
  - Cardiac failure [Recovered/Resolved with Sequelae]
  - Dyspnoea exertional [Recovered/Resolved with Sequelae]
